FAERS Safety Report 19317392 (Version 1)
Quarter: 2021Q2

REPORT INFORMATION
  Report Type: Spontaneous
  Country: US (occurrence: US)
  Receive Date: 20210527
  Receipt Date: 20210527
  Transmission Date: 20210717
  Serious: Yes (Hospitalization, Other)
  Sender: FDA-Public Use
  Company Number: US-MALLINCKRODT PHARMACEUTICALS-T202102266

PATIENT
  Sex: Female
  Weight: 125 kg

DRUGS (1)
  1. H.P. ACTHAR [Suspect]
     Active Substance: CORTICOTROPIN
     Indication: RHEUMATOID ARTHRITIS
     Dosage: 80 UNITS (1ML) TWO TIMES PER WEEK
     Route: 058
     Dates: start: 202009, end: 2021

REACTIONS (2)
  - Acute kidney injury [Unknown]
  - Cardiac disorder [Unknown]
